FAERS Safety Report 7251804-1 (Version None)
Quarter: 2011Q1

REPORT INFORMATION
  Report Type: 
  Country: None (occurrence: None)
  Receive Date: 20110128
  Receipt Date: 20100108
  Transmission Date: 20110831
  Serious: No
  Sender: FDA-Public Use
  Company Number: US-ABBOTT-10P-163-0618127-00

PATIENT
  Sex: Male
  Weight: 84.444 kg

DRUGS (7)
  1. OXYCODONE [Concomitant]
     Indication: PAIN
     Dosage: UNKNOWN
  2. IGG INFUSION [Concomitant]
     Indication: PEMPHIGOID
     Dates: start: 20090701
  3. IMITREX [Concomitant]
     Indication: MIGRAINE
     Dosage: UNKNOWN
     Route: 065
  4. HUMIRA [Suspect]
     Indication: PEMPHIGOID
     Dates: start: 20091222
  5. DAPSONE [Concomitant]
     Indication: PRODUCT USED FOR UNKNOWN INDICATION
  6. DAPSONE [Suspect]
     Indication: PEMPHIGOID
     Route: 042
     Dates: start: 20090401
  7. LORAZEPAM [Concomitant]
     Indication: POST-TRAUMATIC STRESS DISORDER

REACTIONS (2)
  - INTRAOCULAR PRESSURE INCREASED [None]
  - CATARACT [None]
